FAERS Safety Report 25050515 (Version 1)
Quarter: 2025Q1

REPORT INFORMATION
  Report Type: Spontaneous
  Country: US (occurrence: US)
  Receive Date: 20250307
  Receipt Date: 20250307
  Transmission Date: 20250408
  Serious: No
  Sender: Kenvue
  Company Number: US-KENVUE-20250203703

PATIENT
  Sex: Female

DRUGS (2)
  1. MOTRIN [Suspect]
     Active Substance: IBUPROFEN
     Indication: Pain in extremity
     Route: 065
  2. LORBRENA [Concomitant]
     Active Substance: LORLATINIB
     Indication: Product used for unknown indication
     Route: 065

REACTIONS (1)
  - Adverse event [Unknown]
